FAERS Safety Report 6066980-6 (Version None)
Quarter: 2009Q1

REPORT INFORMATION
  Report Type: 
  Country: None (occurrence: None)
  Receive Date: 20090205
  Receipt Date: 20081020
  Transmission Date: 20090719
  Serious: No
  Sender: FDA-Public Use
  Company Number: US-ABBOTT-08P-163-0482933-00

PATIENT
  Sex: Male

DRUGS (4)
  1. VICODIN [Suspect]
     Indication: NECK PAIN
  2. VICODIN [Suspect]
     Indication: BACK PAIN
  3. LORTAB [Suspect]
     Indication: BACK PAIN
     Route: 048
  4. LORTAB [Suspect]
     Indication: NECK PAIN

REACTIONS (2)
  - DRUG INEFFECTIVE [None]
  - MEDICATION ERROR [None]
